FAERS Safety Report 7534080-1 (Version None)
Quarter: 2011Q2

REPORT INFORMATION
  Report Type: 
  Country: None (occurrence: None)
  Receive Date: 20110608
  Receipt Date: 20060814
  Transmission Date: 20111010
  Serious: Yes (Death, Other)
  Sender: FDA-Public Use
  Company Number: PHHO2006VE08165

PATIENT
  Sex: Female

DRUGS (3)
  1. DIOVAN HCT [Suspect]
  2. RADIOTHERAPY [Concomitant]
     Indication: COLON CANCER
  3. CHEMOTHERAPEUTICS,OTHER [Concomitant]
     Indication: COLON CANCER

REACTIONS (2)
  - COLON CANCER [None]
  - RESPIRATORY ARREST [None]
